FAERS Safety Report 5431614-8 (Version None)
Quarter: 2007Q3

REPORT INFORMATION
  Report Type: 
  Country: None (occurrence: None)
  Receive Date: 20070830
  Receipt Date: 20070822
  Transmission Date: 20080115
  Serious: No
  Sender: FDA-Public Use
  Company Number: US-ELI_LILLY_AND_COMPANY-US200708004734

PATIENT
  Sex: Female

DRUGS (2)
  1. CYMBALTA [Suspect]
     Dosage: 60 MG, DAILY (1/D)
     Route: 048
     Dates: start: 20070501, end: 20070601
  2. CYMBALTA [Suspect]
     Dosage: 120 MG, UNK
     Dates: start: 20070601, end: 20070101

REACTIONS (1)
  - HEPATIC ENZYME INCREASED [None]
